FAERS Safety Report 4362883-3 (Version None)
Quarter: 2004Q2

REPORT INFORMATION
  Report Type: 
  Country: None (occurrence: None)
  Receive Date: 20040518
  Receipt Date: 20040504
  Transmission Date: 20050107
  Serious: Yes (Other)
  Sender: FDA-Public Use
  Company Number: 2004-BP-02515PF

PATIENT
  Age: 80 Year
  Sex: Female

DRUGS (6)
  1. SPIRIVA [Suspect]
     Indication: ASTHMA
     Dosage: 18 MCG (18 MCG)
     Dates: start: 20030301
  2. FLIXOTIDE (FLUTICASONE PROPIONATE) [Concomitant]
  3. ACEMIN (LISINOPRIL) [Concomitant]
  4. DEFLAMAT (DICLOFENAC SODIUM) [Concomitant]
  5. LESCOL [Concomitant]
  6. THROMBO ASS (ACETYLSALICYLIC ACID) [Concomitant]

REACTIONS (5)
  - CARDIAC FAILURE [None]
  - ELECTROCARDIOGRAM ABNORMAL [None]
  - EXTRASYSTOLES [None]
  - TACHYCARDIA [None]
  - VENTRICULAR ASYSTOLE [None]
